FAERS Safety Report 14290728 (Version 1)
Quarter: 2017Q4

REPORT INFORMATION
  Report Type: Spontaneous
  Country: US (occurrence: US)
  Receive Date: 20171215
  Receipt Date: 20171215
  Transmission Date: 20180321
  Serious: Yes (Other)
  Sender: FDA-Public Use
  Company Number: US-GLAXOSMITHKLINE-US2017192231

PATIENT
  Sex: Female

DRUGS (1)
  1. BENLYSTA [Suspect]
     Active Substance: BELIMUMAB
     Indication: PRODUCT USED FOR UNKNOWN INDICATION
     Dosage: UNK
     Route: 041

REACTIONS (5)
  - Drug dose omission [Unknown]
  - Systemic lupus erythematosus [Unknown]
  - Drug withdrawal syndrome [Unknown]
  - Fatigue [Not Recovered/Not Resolved]
  - Infection [Recovered/Resolved]
